FAERS Safety Report 7440412-5 (Version None)
Quarter: 2011Q2

REPORT INFORMATION
  Report Type: 
  Country: None (occurrence: None)
  Receive Date: 20110427
  Receipt Date: 20110426
  Transmission Date: 20111010
  Serious: Yes (Death)
  Sender: FDA-Public Use
  Company Number: DE-BRISTOL-MYERS SQUIBB COMPANY-15603335

PATIENT
  Age: 74 Year
  Sex: Male

DRUGS (8)
  1. FOLINIC ACID [Suspect]
     Indication: COLORECTAL CANCER METASTATIC
     Route: 042
     Dates: start: 20110223, end: 20110223
  2. OXALIPLATIN [Suspect]
     Indication: COLORECTAL CANCER METASTATIC
     Route: 042
     Dates: start: 20110223, end: 20110223
  3. METOPROLOL SUCCINATE [Concomitant]
  4. ACETYLCYSTEINE [Concomitant]
  5. FLUOROURACIL [Suspect]
     Indication: COLORECTAL CANCER METASTATIC
     Dosage: RECENT INF:25FEB11
     Route: 042
     Dates: start: 20110223, end: 20110225
  6. PANTOZOL [Concomitant]
     Dosage: PANTOZOL 20
  7. FUROSEMIDE [Concomitant]
     Dosage: 1DF=20 UNITS NOS
  8. CETUXIMAB [Suspect]
     Indication: COLORECTAL CANCER METASTATIC
     Route: 042
     Dates: start: 20110223, end: 20110223

REACTIONS (1)
  - ATRIAL FIBRILLATION [None]
